FAERS Safety Report 13116090 (Version 2)
Quarter: 2017Q1

REPORT INFORMATION
  Report Type: Report from Study
  Country: US (occurrence: US)
  Receive Date: 20170116
  Receipt Date: 20170123
  Transmission Date: 20170428
  Serious: Yes (Other)
  Sender: FDA-Public Use
  Company Number: US-ASTRAZENECA-2016SE74431

PATIENT
  Sex: Female
  Weight: 49 kg

DRUGS (10)
  1. BENADRYL [Concomitant]
     Active Substance: DIPHENHYDRAMINE HYDROCHLORIDE
  2. HYDROCORTISONE. [Concomitant]
     Active Substance: HYDROCORTISONE
  3. XGEVA [Concomitant]
     Active Substance: DENOSUMAB
  4. TAGRISSO [Suspect]
     Active Substance: OSIMERTINIB
     Indication: LUNG NEOPLASM MALIGNANT
     Route: 048
  5. OXYCODONE [Concomitant]
     Active Substance: OXYCODONE
  6. MORPHINE SULFATE ER [Concomitant]
     Active Substance: MORPHINE SULFATE
  7. VITAMIN D3 [Concomitant]
     Active Substance: CHOLECALCIFEROL
  8. CALCIUM CARBONATE. [Concomitant]
     Active Substance: CALCIUM CARBONATE
  9. VITAMIN B-1 [Concomitant]
     Active Substance: THIAMINE
  10. LAXATIVE [Concomitant]
     Active Substance: UNSPECIFIED INGREDIENT

REACTIONS (11)
  - Haemoptysis [Unknown]
  - Dysphonia [Unknown]
  - Sensation of foreign body [Unknown]
  - Musculoskeletal pain [Unknown]
  - Carcinoembryonic antigen increased [Unknown]
  - Dyspepsia [Unknown]
  - Rhinorrhoea [Unknown]
  - Ear discomfort [Unknown]
  - Nasal dryness [Unknown]
  - Epistaxis [Unknown]
  - Productive cough [Unknown]
